FAERS Safety Report 13470687 (Version 1)
Quarter: 2017Q2

REPORT INFORMATION
  Report Type: Spontaneous
  Country: CA (occurrence: CA)
  Receive Date: 20170424
  Receipt Date: 20170424
  Transmission Date: 20170830
  Serious: Yes (Other)
  Sender: FDA-Public Use
  Company Number: CA-CONCORDIA PHARMACEUTICALS INC.-GSH201704-002567

PATIENT
  Sex: Male

DRUGS (9)
  1. ALFUZOSIN [Concomitant]
     Active Substance: ALFUZOSIN
  2. SOTALOL. [Concomitant]
     Active Substance: SOTALOL
  3. METHOTREXATE. [Concomitant]
     Active Substance: METHOTREXATE
     Dates: start: 2014
  4. FINASTERIDE. [Concomitant]
     Active Substance: FINASTERIDE
  5. PLAQUENIL [Suspect]
     Active Substance: HYDROXYCHLOROQUINE SULFATE
     Route: 065
     Dates: start: 2014, end: 2016
  6. ARAVA [Suspect]
     Active Substance: LEFLUNOMIDE
     Indication: PRODUCT USED FOR UNKNOWN INDICATION
     Route: 065
     Dates: start: 2015, end: 2016
  7. ENBREL [Suspect]
     Active Substance: ETANERCEPT
     Indication: RHEUMATOID ARTHRITIS
     Route: 065
     Dates: start: 2015, end: 2016
  8. DEXILANT [Concomitant]
     Active Substance: DEXLANSOPRAZOLE
  9. FOLIC ACID. [Concomitant]
     Active Substance: FOLIC ACID

REACTIONS (3)
  - Osteoarthritis [Unknown]
  - Drug effect incomplete [Unknown]
  - Inguinal hernia [Unknown]
